FAERS Safety Report 4651748-5 (Version None)
Quarter: 2005Q2

REPORT INFORMATION
  Report Type: 
  Country: None (occurrence: None)
  Receive Date: 20050404
  Receipt Date: 20050103
  Transmission Date: 20051028
  Serious: No
  Sender: FDA-Public Use
  Company Number: USA050187317

PATIENT
  Age: 49 Year
  Sex: Female

DRUGS (7)
  1. CYMBALTA [Suspect]
     Indication: DEPRESSION
     Dosage: 30 MG
     Dates: start: 20041229
  2. DILAUDID [Concomitant]
  3. EASPIRIN (ACETYLSALICYLIC ACID) [Concomitant]
  4. LAMICTAL [Concomitant]
  5. XANAX (ALPRAZOLAM DUM) [Concomitant]
  6. BENADRYL [Concomitant]
  7. CLARITIN [Concomitant]

REACTIONS (1)
  - PANIC ATTACK [None]
